FAERS Safety Report 4345680-4 (Version None)
Quarter: 2004Q2

REPORT INFORMATION
  Report Type: 
  Country: None (occurrence: None)
  Receive Date: 20040421
  Receipt Date: 20040408
  Transmission Date: 20050107
  Serious: Yes (Death, Hospitalization, Other)
  Sender: FDA-Public Use
  Company Number: 2004005884

PATIENT
  Age: 55 Year
  Sex: Female

DRUGS (13)
  1. DILANTIN [Suspect]
     Indication: CONVULSION
     Dates: start: 20020101, end: 20020101
  2. QUINAPRIL HCL [Suspect]
     Indication: BLOOD PRESSURE
     Dosage: 80 MG (BID)
     Dates: start: 20020122, end: 20020128
  3. CEREBYX [Suspect]
     Indication: CONVULSION
     Dates: start: 20020202
  4. CLONIDINE [Concomitant]
  5. IBUPROFEN [Concomitant]
  6. LORAZEPAM [Concomitant]
  7. NIFEDIPINE [Concomitant]
  8. METOPROLOL TARTRATE [Concomitant]
  9. FAMOTIDINE [Concomitant]
  10. GABAPENTIN [Concomitant]
  11. PREDNISONE [Concomitant]
  12. CLOTRIMAZOLE (CLITRIMAZOLE) [Concomitant]
  13. NYSTATIN [Concomitant]

REACTIONS (64)
  - AMMONIA INCREASED [None]
  - ANXIETY [None]
  - AORTIC ATHEROSCLEROSIS [None]
  - ATHEROSCLEROSIS [None]
  - BLOOD CALCIUM DECREASED [None]
  - BLOOD CREATININE INCREASED [None]
  - BLOOD FIBRINOGEN INCREASED [None]
  - BLOOD IRON INCREASED [None]
  - BLOOD POTASSIUM INCREASED [None]
  - BLOOD SODIUM DECREASED [None]
  - CARDIAC ARREST [None]
  - CARDIOMEGALY [None]
  - COGNITIVE DISORDER [None]
  - CONVULSION [None]
  - CORONARY ARTERY STENOSIS [None]
  - DERMATITIS EXFOLIATIVE [None]
  - DIALYSIS [None]
  - DISSEMINATED INTRAVASCULAR COAGULATION [None]
  - DRUG HYPERSENSITIVITY [None]
  - DRUG LEVEL ABOVE THERAPEUTIC [None]
  - EMPHYSEMA [None]
  - ENCEPHALOPATHY [None]
  - ERYTHEMA [None]
  - EXOSTOSIS [None]
  - FIBRIN DEGRADATION PRODUCTS INCREASED [None]
  - GENERAL PHYSICAL HEALTH DETERIORATION [None]
  - HAEMATOCRIT DECREASED [None]
  - HAEMOGLOBIN DECREASED [None]
  - HEPATIC FAILURE [None]
  - HEPATIC NECROSIS [None]
  - HEPATORENAL FAILURE [None]
  - HEPATORENAL SYNDROME [None]
  - HYPOTENSION [None]
  - INFLAMMATION [None]
  - INJECTION SITE INFECTION [None]
  - INTRAVENTRICULAR HAEMORRHAGE [None]
  - IRON BINDING CAPACITY TOTAL DECREASED [None]
  - JAUNDICE [None]
  - LEUKOPENIA [None]
  - LYMPHOPENIA [None]
  - MULTI-ORGAN FAILURE [None]
  - MYOCARDIAL ISCHAEMIA [None]
  - NEPHROSCLEROSIS [None]
  - OEDEMA [None]
  - PAIN [None]
  - PLEURAL EFFUSION [None]
  - PRURITUS [None]
  - PULMONARY ARTERY DILATATION [None]
  - PULMONARY CONGESTION [None]
  - PULMONARY OEDEMA [None]
  - PYREXIA [None]
  - RASH [None]
  - RASH MACULO-PAPULAR [None]
  - RENAL FAILURE [None]
  - RENAL TUBULAR NECROSIS [None]
  - RESPIRATORY FAILURE [None]
  - SEPSIS [None]
  - SERUM FERRITIN INCREASED [None]
  - SKIN DESQUAMATION [None]
  - SKIN DISORDER [None]
  - SOMNOLENCE [None]
  - TACHYCARDIA [None]
  - URINARY TRACT INFECTION [None]
  - VENTRICULAR TACHYCARDIA [None]
